FAERS Safety Report 8880921 (Version 2)
Quarter: 2012Q4

REPORT INFORMATION
  Report Type: 
  Country: US (occurrence: US)
  Receive Date: 20121101
  Receipt Date: 20121112
  Transmission Date: 20130627
  Serious: Yes (Hospitalization)
  Sender: FDA-Public Use
  Company Number: US-PFIZER INC-2012262613

PATIENT
  Age: 72 Year
  Sex: Female
  Weight: 64.4 kg

DRUGS (12)
  1. CISPLATIN [Suspect]
     Indication: NON-HODGKIN^S LYMPHOMA
     Dosage: 50 mg/m2, every 21 days
     Route: 042
     Dates: start: 20121009
  2. DEXAMETHASONE ACETATE [Suspect]
     Indication: NON-HODGKIN^S LYMPHOMA
     Dosage: 40 mg, 4 days beginning each cycle
     Route: 048
     Dates: start: 20121009
  3. GEMZAR [Suspect]
     Indication: NON-HODGKIN^S LYMPHOMA
     Dosage: 500 mg/m2, every 21 days
     Route: 042
     Dates: start: 20121009
  4. RITUXAN [Suspect]
     Indication: NON-HODGKIN^S LYMPHOMA
     Dosage: 375 mg/m2, every 21 days
     Route: 042
     Dates: start: 20121009
  5. INOTUZUMAB OZOGAMICIN [Suspect]
     Indication: NON-HODGKIN^S LYMPHOMA
     Dosage: 0.8 mg/m2, every 21 days
     Route: 042
     Dates: start: 20121010
  6. ALBUTEROL [Concomitant]
     Indication: CHRONIC OBSTRUCTIVE PULMONARY DISEASE
     Dosage: 180 ug, as needed
     Route: 055
     Dates: start: 1990
  7. AMLODIPINE [Concomitant]
     Indication: HYPERTENSION
     Dosage: 10 mg, 1x/day
     Route: 048
     Dates: start: 2002
  8. ASPIRIN [Concomitant]
     Indication: CARDIAC DISORDER PROPHYLAXIS
     Dosage: 91 mg, 1x/day
     Route: 048
     Dates: start: 2000
  9. LORAZEPAM [Concomitant]
     Indication: ANXIETY
     Dosage: 1 mg, as needed
     Route: 048
     Dates: start: 2011
  10. METOPROLOL [Concomitant]
     Indication: HYPERTENSION
     Dosage: 25 mg, 1x/day
     Route: 048
     Dates: start: 201111
  11. METOPROLOL [Concomitant]
     Indication: TACHYCARDIA
  12. OMEPRAZOLE [Concomitant]
     Indication: GERD
     Dosage: 40 mg, 1x/day
     Route: 048
     Dates: start: 2007

REACTIONS (1)
  - Febrile neutropenia [Recovered/Resolved]
